FAERS Safety Report 4951736-5 (Version None)
Quarter: 2006Q1

REPORT INFORMATION
  Report Type: 
  Country: None (occurrence: None)
  Receive Date: 20060323
  Receipt Date: 20051013
  Transmission Date: 20060701
  Serious: Yes (Hospitalization)
  Sender: FDA-Public Use
  Company Number: JP-GLAXOSMITHKLINE-B0397182A

PATIENT
  Age: 49 Year
  Sex: Male

DRUGS (5)
  1. HEPSERA [Suspect]
     Indication: HEPATIC CIRRHOSIS
     Dosage: 10MG PER DAY
     Route: 048
     Dates: start: 20040527
  2. ZEFIX [Suspect]
     Dosage: 100MG PER DAY
     Route: 048
     Dates: start: 20020403
  3. ALDACTONE [Concomitant]
     Indication: HEPATIC CIRRHOSIS
     Dosage: 25MG PER DAY
     Route: 048
  4. LASIX [Concomitant]
     Indication: HEPATIC CIRRHOSIS
     Dosage: 20MG PER DAY
     Route: 048
  5. TPN [Concomitant]
     Indication: HEPATIC CIRRHOSIS
     Dosage: 1U PER DAY
     Route: 048

REACTIONS (2)
  - GASTRIC VARICES [None]
  - HEPATIC NEOPLASM MALIGNANT [None]
